FAERS Safety Report 7830969-4 (Version None)
Quarter: 2011Q4

REPORT INFORMATION
  Report Type: 
  Country: None (occurrence: None)
  Receive Date: 20111021
  Receipt Date: 20111018
  Transmission Date: 20120403
  Serious: Yes (Death)
  Sender: FDA-Public Use
  Company Number: US-B.I. PHARMACEUTICALS,INC./RIDGEFIELD-2011-BP-21122BP

PATIENT
  Age: 85 Year
  Sex: Male
  Weight: 57.5 kg

DRUGS (1)
  1. PRADAXA [Suspect]
     Indication: ATRIAL FIBRILLATION
     Dosage: 150 MG
     Route: 048
     Dates: start: 20110401, end: 20110601

REACTIONS (8)
  - SHOCK [None]
  - PULMONARY ALVEOLAR HAEMORRHAGE [None]
  - MELAENA [None]
  - MULTI-ORGAN FAILURE [None]
  - HAEMATEMESIS [None]
  - BRADYCARDIA [None]
  - RESPIRATORY FAILURE [None]
  - HYPOTENSION [None]
